FAERS Safety Report 12324648 (Version 3)
Quarter: 2016Q2

REPORT INFORMATION
  Report Type: Spontaneous
  Country: JP (occurrence: JP)
  Receive Date: 20160502
  Receipt Date: 20160608
  Transmission Date: 20160815
  Serious: Yes (Hospitalization, Other)
  Sender: FDA-Public Use
  Company Number: JP-BRISTOL-MYERS SQUIBB COMPANY-BMS-2016-033781

PATIENT
  Age: 43 Year
  Sex: Female

DRUGS (2)
  1. ABILIFY [Suspect]
     Active Substance: ARIPIPRAZOLE
     Indication: HALLUCINATION
     Dosage: 30 MG, QD
     Route: 048
     Dates: start: 201411, end: 20160325
  2. ABILIFY [Suspect]
     Active Substance: ARIPIPRAZOLE
     Indication: DELUSION

REACTIONS (2)
  - Erythema multiforme [Recovering/Resolving]
  - Swelling face [Recovering/Resolving]

NARRATIVE: CASE EVENT DATE: 20160319
